FAERS Safety Report 7725806-2 (Version None)
Quarter: 2011Q3

REPORT INFORMATION
  Report Type: 
  Country: None (occurrence: None)
  Receive Date: 20110902
  Receipt Date: 20110826
  Transmission Date: 20111222
  Serious: Yes (Hospitalization, Other)
  Sender: FDA-Public Use
  Company Number: DE-AMGEN-DEUSP2011028053

PATIENT
  Sex: Female
  Weight: 69 kg

DRUGS (6)
  1. RAMIPRIL [Concomitant]
     Dosage: 10 MG, UNK
     Route: 048
  2. BISOPROLOL FUMARATE [Concomitant]
     Dosage: 10 MG, UNK
     Route: 048
  3. PANTOPRAZOL                        /01263202/ [Concomitant]
     Dosage: 20 MG, UNK
     Route: 048
  4. SIMVASTATIN [Concomitant]
     Dosage: 10 MG, UNK
     Route: 048
  5. LEVOTHYROXINE SODIUM [Concomitant]
     Dosage: 100 MUG, UNK
     Route: 048
  6. PROLIA [Suspect]
     Indication: PRODUCT USED FOR UNKNOWN INDICATION
     Dosage: UNK
     Dates: start: 20101101

REACTIONS (4)
  - BLOOD PRESSURE FLUCTUATION [None]
  - ERYTHEMA [None]
  - FLUSHING [None]
  - NEUROENDOCRINE TUMOUR [None]
